FAERS Safety Report 14889552 (Version 1)
Quarter: 2018Q2

REPORT INFORMATION
  Report Type: Spontaneous
  Country: US (occurrence: US)
  Receive Date: 20180514
  Receipt Date: 20180514
  Transmission Date: 20180711
  Serious: No
  Sender: FDA-Public Use
  Company Number: US-009507513-1805USA004137

PATIENT
  Age: 12 Year
  Sex: Female

DRUGS (3)
  1. NIVOLUMAB [Concomitant]
     Active Substance: NIVOLUMAB
     Indication: GLIOMA
     Dosage: UNK
  2. ZOLINZA [Suspect]
     Active Substance: VORINOSTAT
     Indication: GLIOMA
     Dosage: UNK
     Route: 048
  3. EVEROLIMUS. [Concomitant]
     Active Substance: EVEROLIMUS
     Indication: GLIOMA
     Dosage: UNK

REACTIONS (1)
  - Off label use [Unknown]
